FAERS Safety Report 18641746 (Version 1)
Quarter: 2020Q4

REPORT INFORMATION
  Report Type: Report from Study
  Country: US (occurrence: US)
  Receive Date: 20201221
  Receipt Date: 20201221
  Transmission Date: 20210114
  Serious: Yes (Hospitalization, Other)
  Sender: FDA-Public Use
  Company Number: US-HORIZON-TEP-1225-2020

PATIENT
  Age: 67 Year
  Sex: Male

DRUGS (12)
  1. MELOXICAM. [Concomitant]
     Active Substance: MELOXICAM
  2. CHLORTHALIDONE. [Concomitant]
     Active Substance: CHLORTHALIDONE
  3. METHIMAZOLE. [Concomitant]
     Active Substance: METHIMAZOLE
  4. ERHTHROMYCIN [Concomitant]
  5. CARVEDILOL. [Concomitant]
     Active Substance: CARVEDILOL
  6. TEPEZZA [Suspect]
     Active Substance: TEPROTUMUMAB-TRBW
     Indication: PRODUCT USED FOR UNKNOWN INDICATION
     Dosage: EVERY THREE WEEKS
     Dates: start: 202006
  7. AMLODIPINE [Concomitant]
     Active Substance: AMLODIPINE BESYLATE
  8. MEDROL [Concomitant]
     Active Substance: METHYLPREDNISOLONE
  9. ARTIFICIAL TEARS [Concomitant]
     Active Substance: GLYCERIN\HYPROMELLOSES\POLYETHYLENE GLYCOL 400
  10. ALFUZOSIN [Concomitant]
     Active Substance: ALFUZOSIN
  11. POTASSIUM CHLORIDE. [Concomitant]
     Active Substance: POTASSIUM CHLORIDE
  12. SELENIUM [Concomitant]
     Active Substance: SELENIUM

REACTIONS (6)
  - Ageusia [Recovered/Resolved]
  - Type 2 diabetes mellitus [Not Recovered/Not Resolved]
  - Skin cancer [Recovered/Resolved]
  - Vision blurred [Recovered/Resolved]
  - Staphylococcal infection [Recovering/Resolving]
  - Blood glucose increased [Recovering/Resolving]

NARRATIVE: CASE EVENT DATE: 202007
